FAERS Safety Report 6251976-1 (Version None)
Quarter: 2009Q2

REPORT INFORMATION
  Report Type: 
  Country: None (occurrence: None)
  Receive Date: 20090630
  Receipt Date: 20090618
  Transmission Date: 20091009
  Serious: Yes (Death)
  Sender: FDA-Public Use
  Company Number: US-ELI_LILLY_AND_COMPANY-US200906004866

PATIENT
  Age: 92 Year
  Sex: Male

DRUGS (1)
  1. PROZAC [Suspect]
     Indication: MAJOR DEPRESSION
     Dosage: 1 MG, UNKNOWN
     Route: 065

REACTIONS (2)
  - DEATH [None]
  - MANIA [None]
